FAERS Safety Report 7790889-0 (Version None)
Quarter: 2011Q3

REPORT INFORMATION
  Report Type: 
  Country: None (occurrence: None)
  Receive Date: 20110930
  Receipt Date: 20110921
  Transmission Date: 20111222
  Serious: Yes (Hospitalization)
  Sender: FDA-Public Use
  Company Number: BR-ASTRAZENECA-2011SE57428

PATIENT
  Age: 55 Year
  Sex: Male
  Weight: 76 kg

DRUGS (4)
  1. LEVOTIROXIN [Concomitant]
     Indication: THYROIDECTOMY
     Route: 048
     Dates: start: 19930101
  2. SIGMATRIOL [Concomitant]
     Indication: THYROIDECTOMY
     Route: 048
     Dates: start: 20060101
  3. ATACAND [Suspect]
     Indication: HYPERTENSION
     Route: 048
     Dates: start: 20070101, end: 20110801
  4. CALCIUM CARBONATE [Concomitant]
     Indication: THYROIDECTOMY
     Route: 048
     Dates: start: 20060101

REACTIONS (6)
  - CHOLELITHIASIS [None]
  - DRUG INEFFECTIVE [None]
  - BLOOD URIC ACID INCREASED [None]
  - BLOOD PRESSURE FLUCTUATION [None]
  - DYSURIA [None]
  - BENIGN PROSTATIC HYPERPLASIA [None]
